FAERS Safety Report 16966608 (Version 1)
Quarter: 2019Q4

REPORT INFORMATION
  Report Type: Spontaneous
  Country: FR (occurrence: FR)
  Receive Date: 20191028
  Receipt Date: 20191028
  Transmission Date: 20200122
  Serious: Yes (Hospitalization)
  Sender: FDA-Public Use
  Company Number: FR-MYLANLABS-2019M1101073

PATIENT
  Age: 58 Year
  Sex: Male
  Weight: 54 kg

DRUGS (7)
  1. APREPITANT. [Suspect]
     Active Substance: APREPITANT
     Indication: SQUAMOUS CELL CARCINOMA OF THE HYPOPHARYNX
     Dosage: 80 MILLIGRAM, QD
     Route: 048
     Dates: start: 20190319, end: 20190321
  2. PREDNISONE. [Suspect]
     Active Substance: PREDNISONE
     Indication: SQUAMOUS CELL CARCINOMA OF THE HYPOPHARYNX
     Dosage: 40 MILLIGRAM, QD
     Route: 048
     Dates: start: 20190320, end: 20190322
  3. ONDANSETRON [Suspect]
     Active Substance: ONDANSETRON
     Indication: SQUAMOUS CELL CARCINOMA OF THE HYPOPHARYNX
     Dosage: 16 MILLIGRAM, QD
     Route: 042
     Dates: start: 20190319, end: 20190319
  4. CISPLATIN. [Suspect]
     Active Substance: CISPLATIN
     Indication: SQUAMOUS CELL CARCINOMA OF THE HYPOPHARYNX
     Dosage: 119 MILLIGRAM
     Route: 042
     Dates: start: 20190319, end: 20190319
  5. TAXOTERE [Suspect]
     Active Substance: DOCETAXEL
     Indication: SQUAMOUS CELL CARCINOMA OF THE HYPOPHARYNX
     Dosage: 120 MILLIGRAM
     Route: 042
     Dates: start: 20190319, end: 20190319
  6. FLUOROURACILE [Suspect]
     Active Substance: FLUOROURACIL
     Indication: SQUAMOUS CELL CARCINOMA OF THE HYPOPHARYNX
     Dosage: 5950 MILLIGRAM
     Route: 041
     Dates: start: 20190319, end: 20190319
  7. METHYLPREDNISOLONE. [Suspect]
     Active Substance: METHYLPREDNISOLONE
     Indication: SQUAMOUS CELL CARCINOMA OF THE HYPOPHARYNX
     Dosage: 60 MILLIGRAM, QD
     Route: 042
     Dates: start: 20190319, end: 20190319

REACTIONS (1)
  - Acute generalised exanthematous pustulosis [Not Recovered/Not Resolved]

NARRATIVE: CASE EVENT DATE: 20190324
